FAERS Safety Report 19748102 (Version 1)
Quarter: 2021Q3

REPORT INFORMATION
  Report Type: Spontaneous
  Country: US (occurrence: US)
  Receive Date: 20210824
  Receipt Date: 20210824
  Transmission Date: 20211014
  Serious: No
  Sender: FDA-Public Use
  Company Number: None

PATIENT
  Age: 76 Year
  Sex: Male
  Weight: 124 kg

DRUGS (4)
  1. DEXAMETHASONE. [Suspect]
     Active Substance: DEXAMETHASONE
  2. INVANZ [Suspect]
     Active Substance: ERTAPENEM SODIUM
  3. REMDESIVIR. [Suspect]
     Active Substance: REMDESIVIR
  4. WARFARIN [Suspect]
     Active Substance: WARFARIN

REACTIONS (1)
  - International normalised ratio increased [None]

NARRATIVE: CASE EVENT DATE: 20210823
